FAERS Safety Report 6661285 (Version 2)
Quarter: 2024Q1

REPORT INFORMATION
  Report Type: Spontaneous
  Country: FR (occurrence: FR)
  Receive Date: 20080610
  Receipt Date: 20240320
  Transmission Date: 20240410
  Serious: Yes (Hospitalization, Other)
  Sender: FDA-Public Use
  Company Number: FR-BRISTOL-MYERS SQUIBB COMPANY-14218275

PATIENT
  Age: 77 Year
  Sex: Male
  Weight: 94 kg

DRUGS (11)
  1. REYATAZ [Suspect]
     Active Substance: ATAZANAVIR SULFATE
     Indication: HIV infection
     Route: 048
     Dates: start: 20060815
  2. TRUVADA [Suspect]
     Active Substance: EMTRICITABINE\TENOFOVIR DISOPROXIL FUMARATE
     Indication: HIV infection
     Dosage: UNK UNK, QD
     Route: 048
     Dates: start: 20060815, end: 200804
  3. NORVIR [Suspect]
     Active Substance: RITONAVIR
     Indication: HIV infection
     Dosage: 100 MG, QD
     Route: 048
     Dates: start: 20060815
  4. IRBESARTAN [Concomitant]
     Active Substance: IRBESARTAN
     Indication: Hypertension
     Dosage: 1 DOSAGE FORM = 1/2TABLET OF 150 MG
     Route: 048
     Dates: start: 2001
  5. FLUVASTATIN SODIUM [Concomitant]
     Active Substance: FLUVASTATIN SODIUM
     Indication: Dyslipidaemia
     Dosage: 20 MG, QD
  6. FLUVASTATIN SODIUM [Concomitant]
     Active Substance: FLUVASTATIN SODIUM
     Route: 048
     Dates: start: 1999
  7. RIVOTRIL [Concomitant]
     Active Substance: CLONAZEPAM
     Indication: Product used for unknown indication
     Dosage: 9 GTT, QD
  8. ASPIRIN DL-LYSINE [Concomitant]
     Active Substance: ASPIRIN DL-LYSINE
  9. ESOMEPRAZOLE [Concomitant]
     Active Substance: ESOMEPRAZOLE
     Indication: Product used for unknown indication
     Route: 048
  10. ZOPICLONE [Concomitant]
     Active Substance: ZOPICLONE
     Indication: Product used for unknown indication
     Route: 048
  11. PERINDOPRIL [Concomitant]
     Active Substance: PERINDOPRIL
     Indication: Product used for unknown indication
     Route: 048

REACTIONS (8)
  - Myocardial infarction [Recovered/Resolved with Sequelae]
  - Bronchitis [Unknown]
  - Atrioventricular block second degree [Unknown]
  - Platelet count decreased [Recovered/Resolved]
  - Blood pressure decreased [Unknown]
  - Heart rate decreased [Unknown]
  - Renal impairment [Unknown]
  - Vertigo [Unknown]

NARRATIVE: CASE EVENT DATE: 20070728
